FAERS Safety Report 6929101-0 (Version None)
Quarter: 2010Q3

REPORT INFORMATION
  Report Type: 
  Country: None (occurrence: None)
  Receive Date: 20100817
  Receipt Date: 20100805
  Transmission Date: 20110219
  Serious: Yes (Hospitalization)
  Sender: FDA-Public Use
  Company Number: CH-ABBOTT-10P-151-0662052-00

PATIENT
  Age: 13 Year
  Sex: Male
  Weight: 34 kg

DRUGS (4)
  1. IBRUPROFEN [Suspect]
     Indication: ORCHITIS
     Route: 048
     Dates: start: 20100616
  2. IBRUPROFEN [Suspect]
     Indication: EPIDIDYMITIS
  3. BACTRIM [Suspect]
     Indication: ORCHITIS
     Route: 048
     Dates: start: 20100616, end: 20100629
  4. BACTRIM [Suspect]
     Indication: EPIDIDYMITIS

REACTIONS (12)
  - CONDITION AGGRAVATED [None]
  - COUGH [None]
  - DERMATITIS BULLOUS [None]
  - EOSINOPHILIA [None]
  - ERYTHEMA [None]
  - LEUKOPENIA [None]
  - LYMPHOPENIA [None]
  - ODYNOPHAGIA [None]
  - PAIN OF SKIN [None]
  - PRURITUS [None]
  - PYREXIA [None]
  - RASH MORBILLIFORM [None]
